FAERS Safety Report 6182452-2 (Version None)
Quarter: 2009Q2

REPORT INFORMATION
  Report Type: 
  Country: None (occurrence: None)
  Receive Date: 20090507
  Receipt Date: 20090429
  Transmission Date: 20091009
  Serious: Yes (Hospitalization, Disabling, Other)
  Sender: FDA-Public Use
  Company Number: US-ROCHE-385660

PATIENT
  Sex: Female
  Weight: 74.8 kg

DRUGS (3)
  1. ACCUTANE [Suspect]
     Indication: ACNE
     Route: 065
     Dates: start: 19930612, end: 19931101
  2. ACCUTANE [Suspect]
     Route: 065
     Dates: start: 19941230, end: 19950601
  3. ACCUTANE [Suspect]
     Route: 065
     Dates: start: 19981017, end: 19990201

REACTIONS (34)
  - ABDOMINAL ABSCESS [None]
  - ABSCESS [None]
  - ACID FAST BACILLI INFECTION [None]
  - AFFECTIVE DISORDER [None]
  - ANAL ABSCESS [None]
  - ANAL FISTULA [None]
  - ANGIOEDEMA [None]
  - ANORECTAL DISORDER [None]
  - ANXIETY [None]
  - ARTHRALGIA [None]
  - ARTHRITIS ENTEROPATHIC [None]
  - COLITIS [None]
  - COLITIS ULCERATIVE [None]
  - COLONIC STENOSIS [None]
  - COUGH [None]
  - CROHN'S DISEASE [None]
  - EATING DISORDER [None]
  - EYE PRURITUS [None]
  - FEMALE GENITAL TRACT FISTULA [None]
  - GASTRITIS [None]
  - GASTROINTESTINAL DISORDER [None]
  - GASTROOESOPHAGEAL REFLUX DISEASE [None]
  - INFLAMMATORY BOWEL DISEASE [None]
  - INTESTINAL HAEMORRHAGE [None]
  - IRON DEFICIENCY ANAEMIA [None]
  - LYMPHOCYTIC INFILTRATION [None]
  - MULTI-ORGAN DISORDER [None]
  - OESOPHAGITIS [None]
  - ORAL PAIN [None]
  - PLATELET COUNT INCREASED [None]
  - PYREXIA [None]
  - RECTAL HAEMORRHAGE [None]
  - RHEUMATOID ARTHRITIS [None]
  - VITAMIN D DEFICIENCY [None]
